FAERS Safety Report 12964990 (Version 4)
Quarter: 2017Q1

REPORT INFORMATION
  Report Type: Report from Study
  Country: JP (occurrence: JP)
  Receive Date: 20161122
  Receipt Date: 20170120
  Transmission Date: 20170428
  Serious: Yes (Hospitalization, Other)
  Sender: FDA-Public Use
  Company Number: JP-INCYTE CORPORATION-2016IN007393

PATIENT
  Age: 84 Year
  Sex: Male

DRUGS (1)
  1. JAKAVI [Suspect]
     Active Substance: RUXOLITINIB
     Indication: MYELOFIBROSIS
     Dosage: 5 MG, QD
     Route: 048

REACTIONS (10)
  - Herpes zoster disseminated [Recovering/Resolving]
  - Pain in extremity [Unknown]
  - Bradycardia [Unknown]
  - Gait disturbance [Unknown]
  - Meningitis viral [Unknown]
  - Asthenia [Unknown]
  - Muscular weakness [Unknown]
  - Decreased appetite [Unknown]
  - Pyrexia [Unknown]
  - Blood pressure systolic increased [Unknown]
